FAERS Safety Report 14431604 (Version 4)
Quarter: 2022Q3

REPORT INFORMATION
  Report Type: Spontaneous
  Country: US (occurrence: None)
  Receive Date: 20180124
  Receipt Date: 20220921
  Transmission Date: 20221026
  Serious: Yes (Other)
  Sender: FDA-Public Use
  Company Number: 2018SE06895

PATIENT
  Age: 643 Month
  Sex: Female
  Weight: 73.9 kg

DRUGS (68)
  1. NEXIUM [Suspect]
     Active Substance: ESOMEPRAZOLE MAGNESIUM
     Indication: Gastrooesophageal reflux disease
     Route: 048
     Dates: start: 2009, end: 2016
  2. NEXIUM [Suspect]
     Active Substance: ESOMEPRAZOLE MAGNESIUM
     Indication: Gastrooesophageal reflux disease
     Dosage: GENERIC (ESOMEPRAZOLE)
     Route: 065
     Dates: start: 2009, end: 2016
  3. NEXIUM [Suspect]
     Active Substance: ESOMEPRAZOLE MAGNESIUM
     Indication: Gastrooesophageal reflux disease
     Dosage: 40.0MG UNKNOWN
     Route: 048
     Dates: start: 2010, end: 2016
  4. NEXIUM [Suspect]
     Active Substance: ESOMEPRAZOLE MAGNESIUM
     Indication: Gastrooesophageal reflux disease
     Dosage: 40.0MG UNKNOWN
     Route: 048
     Dates: start: 20140624, end: 2016
  5. NEXIUM [Suspect]
     Active Substance: ESOMEPRAZOLE MAGNESIUM
     Indication: Gastrooesophageal reflux disease
     Dosage: GENERIC (ESOMEPRAZOLE)40.0MG UNKNOWN
     Route: 065
     Dates: start: 20160829
  6. NEXIUM [Suspect]
     Active Substance: ESOMEPRAZOLE MAGNESIUM
     Indication: Gastrooesophageal reflux disease
     Dosage: GENERIC (ESOMEPRAZOLE)40.0MG UNKNOWN
     Route: 065
     Dates: start: 2022
  7. NEXIUM 24HR [Suspect]
     Active Substance: ESOMEPRAZOLE MAGNESIUM
     Indication: Gastrooesophageal reflux disease
     Route: 048
     Dates: start: 2018, end: 2022
  8. NEXIUM 24HR [Suspect]
     Active Substance: ESOMEPRAZOLE MAGNESIUM
     Indication: Gastrooesophageal reflux disease
     Route: 048
     Dates: start: 20170217
  9. OMEPRAZOLE [Suspect]
     Active Substance: OMEPRAZOLE
     Indication: Gastrooesophageal reflux disease
     Dosage: GENERIC20.0MG UNKNOWN
     Route: 065
     Dates: start: 2014
  10. OMEPRAZOLE [Suspect]
     Active Substance: OMEPRAZOLE
     Indication: Gastrooesophageal reflux disease
     Dosage: GENERIC20.0MG UNKNOWN
     Route: 048
     Dates: start: 20070129
  11. OMEPRAZOLE [Suspect]
     Active Substance: OMEPRAZOLE
     Indication: Gastrooesophageal reflux disease
     Dosage: GENERIC UNKNOWN
     Route: 065
  12. PREVACID [Suspect]
     Active Substance: LANSOPRAZOLE
     Indication: Gastrooesophageal reflux disease
     Dosage: 30.0MG UNKNOWN
     Route: 065
     Dates: start: 2009, end: 2010
  13. PREVACID [Suspect]
     Active Substance: LANSOPRAZOLE
     Indication: Gastrooesophageal reflux disease
     Dosage: UNKNOWN
     Route: 065
     Dates: start: 2009, end: 2016
  14. PROTONIX [Suspect]
     Active Substance: PANTOPRAZOLE SODIUM
     Indication: Gastrooesophageal reflux disease
     Dosage: GENERIC40.0MG UNKNOWN
     Route: 065
     Dates: start: 20130430
  15. PROTONIX [Suspect]
     Active Substance: PANTOPRAZOLE SODIUM
     Indication: Gastrooesophageal reflux disease
     Dosage: 40.0MG UNKNOWN
     Route: 065
     Dates: start: 20150317, end: 20150318
  16. FLUOXETINE [Concomitant]
     Active Substance: FLUOXETINE HYDROCHLORIDE
     Indication: Depression
     Dates: start: 2016
  17. GABAPENTIN [Concomitant]
     Active Substance: GABAPENTIN
     Indication: Pain
     Dates: start: 2013
  18. ESCIN/LEVOTHYROXINE [Concomitant]
     Indication: Hypothyroidism
     Dates: start: 2015
  19. LORAZEPAM [Concomitant]
     Active Substance: LORAZEPAM
     Indication: Seizure
     Dates: start: 2014
  20. ONDANSETRON [Concomitant]
     Active Substance: ONDANSETRON
     Indication: Nausea
     Dates: start: 2013
  21. VENTOLIN [Concomitant]
     Active Substance: ALBUTEROL SULFATE
     Indication: Bronchospasm
     Route: 065
  22. ACETAMINOPHEN [Concomitant]
     Active Substance: ACETAMINOPHEN
  23. HYDROCODONE [Concomitant]
     Active Substance: HYDROCODONE
  24. IBUPROFEN [Concomitant]
     Active Substance: IBUPROFEN
  25. MELOXICAM [Concomitant]
     Active Substance: MELOXICAM
  26. SULFAMETHOXAZOLE\TRIMETHOPRIM [Concomitant]
     Active Substance: SULFAMETHOXAZOLE\TRIMETHOPRIM
  27. TRIMETHOPRIM [Concomitant]
     Active Substance: TRIMETHOPRIM
  28. AZITHROMYCIN [Concomitant]
     Active Substance: AZITHROMYCIN
  29. CLONAZEPAM [Concomitant]
     Active Substance: CLONAZEPAM
     Dates: start: 2016
  30. OXYCODONE [Concomitant]
     Active Substance: OXYCODONE
     Dates: start: 2016
  31. TRAZODONE [Concomitant]
     Active Substance: TRAZODONE HYDROCHLORIDE
     Dates: start: 2016
  32. XYLOCAINE [Concomitant]
     Active Substance: LIDOCAINE HYDROCHLORIDE
     Dates: start: 2016
  33. LEVAQUIN [Concomitant]
     Active Substance: LEVOFLOXACIN
     Dates: start: 2016
  34. DEMEROL [Concomitant]
     Active Substance: MEPERIDINE HYDROCHLORIDE
     Dates: start: 2016
  35. ZOFRAN [Concomitant]
     Active Substance: ONDANSETRON HYDROCHLORIDE
     Dates: start: 2016
  36. COLACE [Concomitant]
     Active Substance: DOCUSATE SODIUM
     Dates: start: 2016
  37. CIPROFLOXACIN [Concomitant]
     Active Substance: CIPROFLOXACIN
     Dates: start: 2016
  38. SUBLIMAZE [Concomitant]
     Active Substance: FENTANYL CITRATE
     Dates: start: 2016
  39. DITROPAN [Concomitant]
     Active Substance: OXYBUTYNIN CHLORIDE
     Dates: start: 2016
  40. SENOKOT [Concomitant]
     Active Substance: SENNOSIDES
     Dates: start: 2016
  41. BUPIVACAINE [Concomitant]
     Active Substance: BUPIVACAINE
     Dates: start: 2016
  42. DULCOLAX NOS [Concomitant]
     Active Substance: BISACODYL OR DOCUSATE SODIUM
     Dates: start: 2016
  43. CLEOCIN [Concomitant]
     Active Substance: CLINDAMYCIN PHOSPHATE
     Dates: start: 2016
  44. SYNTHROID [Concomitant]
     Active Substance: LEVOTHYROXINE SODIUM
     Dates: start: 2016
  45. ZOLOFT [Concomitant]
     Active Substance: SERTRALINE HYDROCHLORIDE
     Dates: start: 2016
  46. NARCAN [Concomitant]
     Active Substance: NALOXONE HYDROCHLORIDE
     Dates: start: 2016
  47. CEFAZOLIN [Concomitant]
     Active Substance: CEFAZOLIN
     Dates: start: 2016
  48. CEPHALEXIN [Concomitant]
     Active Substance: CEPHALEXIN
     Dates: start: 2016
  49. MIDAZOLAM [Concomitant]
     Active Substance: MIDAZOLAM
     Dates: start: 2016
  50. KYTRIL [Concomitant]
     Active Substance: GRANISETRON HYDROCHLORIDE
  51. EMEND [Concomitant]
     Active Substance: APREPITANT
  52. ELOXATIN [Concomitant]
     Active Substance: OXALIPLATIN
  53. DEXTROSE [Concomitant]
     Active Substance: DEXTROSE
  54. DILAUDID [Concomitant]
     Active Substance: HYDROMORPHONE HYDROCHLORIDE
  55. HEPARIN [Concomitant]
     Active Substance: HEPARIN SODIUM
  56. PHENERGAN [Concomitant]
     Active Substance: PROMETHAZINE HYDROCHLORIDE
  57. REMERON [Concomitant]
     Active Substance: MIRTAZAPINE
  58. AMBIEN [Concomitant]
     Active Substance: ZOLPIDEM TARTRATE
  59. XELODA [Concomitant]
     Active Substance: CAPECITABINE
  60. IMODIUM [Concomitant]
     Active Substance: LOPERAMIDE HYDROCHLORIDE
  61. SACCHAROMYCES CEREVISIAE [Concomitant]
     Active Substance: SACCHAROMYCES CEREVISIAE
  62. MAGNESIUM OXIDE [Concomitant]
     Active Substance: MAGNESIUM OXIDE
  63. SODIUM CHLORIDE [Concomitant]
     Active Substance: SODIUM CHLORIDE
  64. COMPAZINE [Concomitant]
     Active Substance: PROCHLORPERAZINE MALEATE
  65. EMLA [Concomitant]
     Active Substance: LIDOCAINE\PRILOCAINE
  66. MORPHINE [Concomitant]
     Active Substance: MORPHINE
  67. ENOXAPARIN [Concomitant]
     Active Substance: ENOXAPARIN
  68. LIDOCAINE [Concomitant]
     Active Substance: LIDOCAINE

REACTIONS (3)
  - Acute kidney injury [Unknown]
  - Chronic kidney disease [Not Recovered/Not Resolved]
  - Renal failure [Not Recovered/Not Resolved]

NARRATIVE: CASE EVENT DATE: 20131001
